FAERS Safety Report 19189407 (Version 3)
Quarter: 2021Q4

REPORT INFORMATION
  Report Type: Report from Study
  Country: JP (occurrence: JP)
  Receive Date: 20210428
  Receipt Date: 20211228
  Transmission Date: 20220303
  Serious: Yes (Life-Threatening, Other)
  Sender: FDA-Public Use
  Company Number: JP-GLAXOSMITHKLINE-JP2021JPN090850

PATIENT
  Age: 59 Year
  Sex: Female

DRUGS (7)
  1. MEPOLIZUMAB [Suspect]
     Active Substance: MEPOLIZUMAB
     Indication: Eosinophilic granulomatosis with polyangiitis
     Dosage: 300 MG
     Route: 058
     Dates: start: 20190405
  2. MEPOLIZUMAB [Suspect]
     Active Substance: MEPOLIZUMAB
     Indication: Eosinophilic granulomatosis with polyangiitis
     Dosage: 300 MG
     Route: 058
  3. EDIROL CAPSULE [Concomitant]
     Indication: Osteoporosis
     Dosage: 0.75 ?G
     Route: 048
  4. ROSUVASTATIN OD TABLETS [Concomitant]
     Indication: Hyperlipidaemia
     Dosage: 2.5 MG
     Route: 048
  5. CARBOCYSTEINE [Concomitant]
     Active Substance: CARBOCYSTEINE
     Indication: Productive cough
     Dosage: 500 MG
     Route: 048
  6. AMBROXOL HYDROCHLORIDE OD [Concomitant]
     Indication: Productive cough
     Dosage: 45 MG
     Route: 048
  7. SYMBICORT INHALATION [Concomitant]
     Indication: Asthma
     Dosage: 2 DF, BID
     Route: 055

REACTIONS (1)
  - Breast cancer [Not Recovered/Not Resolved]

NARRATIVE: CASE EVENT DATE: 20210101
